FAERS Safety Report 8007869-2 (Version None)
Quarter: 2011Q4

REPORT INFORMATION
  Report Type: 
  Country: None (occurrence: None)
  Receive Date: 20111227
  Receipt Date: 20111220
  Transmission Date: 20120403
  Serious: Yes (Hospitalization)
  Sender: FDA-Public Use
  Company Number: FI-PFIZER INC-2011309595

PATIENT
  Age: 49 Year
  Sex: Female

DRUGS (3)
  1. PAZOPANIB [Suspect]
     Indication: RENAL CELL CARCINOMA
     Dosage: UNK MG, UNK
     Dates: start: 20110119, end: 20110330
  2. SUNITINIB MALATE [Suspect]
     Indication: RENAL CELL CARCINOMA
     Dosage: UNK MG, UNK
     Route: 048
     Dates: start: 20110413, end: 20110621
  3. PAZOPANIB [Suspect]
     Dosage: 800 MG, UNK
     Route: 048
     Dates: start: 20110706

REACTIONS (3)
  - BACTEROIDES TEST POSITIVE [None]
  - ABSCESS INTESTINAL [None]
  - ESCHERICHIA INFECTION [None]
